FAERS Safety Report 10589942 (Version 9)
Quarter: 2015Q4

REPORT INFORMATION
  Report Type: Report from Study
  Country: US (occurrence: US)
  Receive Date: 20141118
  Receipt Date: 20151118
  Transmission Date: 20160304
  Serious: Yes (Hospitalization, Other)
  Sender: FDA-Public Use
  Company Number: PHHO2014US015168

PATIENT
  Age: 16 Year
  Sex: Male
  Weight: 54 kg

DRUGS (11)
  1. AFINITOR [Suspect]
     Active Substance: EVEROLIMUS
     Indication: TUBEROUS SCLEROSIS
     Dosage: DOUBLE BLIND
     Route: 048
     Dates: start: 20140324, end: 20140727
  2. EVEROLIMUS [Suspect]
     Active Substance: EVEROLIMUS
     Dosage: 20 MG, UNK
     Route: 048
     Dates: start: 20141020, end: 20141110
  3. BLINDED NO TREATMENT RECEIVED [Suspect]
     Active Substance: INVESTIGATIONAL PRODUCT
     Indication: TUBEROUS SCLEROSIS
     Dosage: DOUBLE BLIND
     Route: 048
     Dates: start: 20140324, end: 20140727
  4. ONFI [Concomitant]
     Active Substance: CLOBAZAM
     Dosage: 15 MG (10 MG/ 15 MG)
     Route: 048
     Dates: start: 20141106, end: 20141108
  5. BANZEL [Concomitant]
     Active Substance: RUFINAMIDE
     Indication: PROPHYLAXIS
     Dosage: 200 MG, BID
     Route: 048
     Dates: start: 201304
  6. ATIVAN [Suspect]
     Active Substance: LORAZEPAM
     Indication: SEIZURE
     Route: 065
  7. ONFI [Concomitant]
     Active Substance: CLOBAZAM
     Indication: PROPHYLAXIS
     Dosage: 15 MG, BID
     Route: 048
     Dates: start: 200811, end: 20141105
  8. ONFI [Concomitant]
     Active Substance: CLOBAZAM
     Dosage: 10 MG, BID
     Route: 048
     Dates: start: 20141109, end: 20141110
  9. BLINDED PLACEBO [Suspect]
     Active Substance: INVESTIGATIONAL PRODUCT
     Indication: TUBEROUS SCLEROSIS
     Dosage: DOUBLE BLIND
     Route: 048
     Dates: start: 20140324, end: 20140727
  10. EVEROLIMUS [Suspect]
     Active Substance: EVEROLIMUS
     Indication: TUBEROUS SCLEROSIS
     Dosage: 12 MG, UNK
     Route: 048
     Dates: start: 20140728, end: 20141019
  11. ONFI [Concomitant]
     Active Substance: CLOBAZAM
     Dosage: UNK
     Route: 048
     Dates: start: 20141110

REACTIONS (5)
  - Seizure [Recovered/Resolved]
  - Pulmonary haemorrhage [Recovered/Resolved]
  - Pneumonia aspiration [Recovered/Resolved]
  - Respiratory failure [Recovered/Resolved]
  - Status epilepticus [Recovered/Resolved]

NARRATIVE: CASE EVENT DATE: 20141106
